FAERS Safety Report 20068793 (Version 1)
Quarter: 2021Q4

REPORT INFORMATION
  Report Type: Spontaneous
  Country: US (occurrence: US)
  Receive Date: 20211115
  Receipt Date: 20211115
  Transmission Date: 20220303
  Serious: Yes (Other)
  Sender: FDA-Public Use
  Company Number: US-CELGENE-USA-20211102589

PATIENT
  Sex: Male
  Weight: 134 kg

DRUGS (1)
  1. ONUREG [Suspect]
     Active Substance: AZACITIDINE
     Indication: Chronic lymphocytic leukaemia refractory
     Dosage: 300 MILLIGRAM
     Route: 048

REACTIONS (1)
  - Arthropathy [Unknown]
